FAERS Safety Report 23049590 (Version 1)
Quarter: 2023Q4

REPORT INFORMATION
  Report Type: Spontaneous
  Country: None (occurrence: FR)
  Receive Date: 20231010
  Receipt Date: 20231010
  Transmission Date: 20240110
  Serious: Yes (Other)
  Sender: FDA-Public Use
  Company Number: FR-Hill Dermaceuticals, Inc.-2146869

PATIENT
  Age: 62 Year
  Sex: Male

DRUGS (1)
  1. TOLAK [Suspect]
     Active Substance: FLUOROURACIL
     Indication: Actinic keratosis
     Route: 003
     Dates: start: 20221116, end: 20221130

REACTIONS (1)
  - Rash erythematous [Recovered/Resolved]

NARRATIVE: CASE EVENT DATE: 20221130
